FAERS Safety Report 16143429 (Version 1)
Quarter: 2019Q2

REPORT INFORMATION
  Report Type: Report from Study
  Country: GB (occurrence: GB)
  Receive Date: 20190401
  Receipt Date: 20190401
  Transmission Date: 20190711
  Serious: Yes (Death)
  Sender: FDA-Public Use
  Company Number: GB-TESARO-2019-TSO00209-GB

PATIENT

DRUGS (1)
  1. NIRAPARIB [Suspect]
     Active Substance: NIRAPARIB
     Indication: OVARIAN CANCER STAGE III
     Dosage: 200 MG, UNK
     Route: 065
     Dates: start: 20170525, end: 20171011

REACTIONS (1)
  - Death [Fatal]

NARRATIVE: CASE EVENT DATE: 20181227
